FAERS Safety Report 15616951 (Version 1)
Quarter: 2018Q4

REPORT INFORMATION
  Report Type: Spontaneous
  Country: JP (occurrence: JP)
  Receive Date: 20181114
  Receipt Date: 20181114
  Transmission Date: 20190205
  Serious: Yes (Hospitalization)
  Sender: FDA-Public Use
  Company Number: JP-PFIZER INC-2018459661

PATIENT

DRUGS (1)
  1. CABASER 1.0MG [Suspect]
     Active Substance: CABERGOLINE
     Indication: PARKINSON^S DISEASE
     Dosage: 1 MG, 2X/DAY
     Route: 048

REACTIONS (2)
  - Femur fracture [Unknown]
  - Product dose omission [Unknown]
